FAERS Safety Report 23318345 (Version 1)
Quarter: 2023Q4

REPORT INFORMATION
  Report Type: Report from Study
  Country: BE (occurrence: BE)
  Receive Date: 20231220
  Receipt Date: 20231220
  Transmission Date: 20240110
  Serious: Yes (Hospitalization)
  Sender: FDA-Public Use
  Company Number: BE-ABBVIE-5546329

PATIENT
  Sex: Male
  Weight: 92 kg

DRUGS (3)
  1. CARBIDOPA\LEVODOPA [Suspect]
     Active Substance: CARBIDOPA\LEVODOPA
     Indication: Parkinson^s disease
     Dosage: MD: 4.0 + 3.0 ML, CD: 4.2 ML/H, ED: 4.0 ML, CND: 2.8 ML/H REMAINS AT 24 HOURS
     Route: 050
     Dates: start: 20230922
  2. CARBIDOPA\LEVODOPA [Suspect]
     Active Substance: CARBIDOPA\LEVODOPA
     Route: 050
     Dates: start: 20221114
  3. STALEVO [Concomitant]
     Active Substance: CARBIDOPA\ENTACAPONE\LEVODOPA
     Indication: Product used for unknown indication
     Dosage: FORM STRENGTH: 100

REACTIONS (3)
  - Device dislocation [Unknown]
  - Confusional state [Unknown]
  - Off label use [Unknown]
